FAERS Safety Report 6328540-9 (Version None)
Quarter: 2009Q3

REPORT INFORMATION
  Report Type: 
  Country: None (occurrence: None)
  Receive Date: 20090826
  Receipt Date: 20071105
  Transmission Date: 20100115
  Serious: Yes (Other)
  Sender: FDA-Public Use
  Company Number: US-ASTRAZENECA-2007UW13877

PATIENT
  Age: 39 Year
  Sex: Female
  Weight: 51.7 kg

DRUGS (29)
  1. SEROQUEL [Suspect]
     Indication: SLEEP DISORDER
     Dosage: 25 MG - 100 MG
     Route: 048
     Dates: start: 20020101, end: 20060201
  2. SEROQUEL [Suspect]
     Indication: DEPRESSION
     Dosage: 25 MG - 100 MG
     Route: 048
     Dates: start: 20020101, end: 20060201
  3. SEROQUEL [Suspect]
     Indication: ATTENTION DEFICIT/HYPERACTIVITY DISORDER
     Dosage: 25 MG - 100 MG
     Route: 048
     Dates: start: 20020101, end: 20060201
  4. ABILIFY [Concomitant]
     Dates: start: 20060101
  5. ABILIFY [Concomitant]
     Dates: start: 20071022
  6. XANAX [Concomitant]
     Dates: start: 19930101
  7. XANAX [Concomitant]
     Dates: start: 20071022
  8. KLONOPIN [Concomitant]
     Dates: start: 19930101
  9. LEXAPRO [Concomitant]
  10. LEXAPRO [Concomitant]
     Dates: start: 20071022
  11. BUSPAR [Concomitant]
     Dates: start: 20011126
  12. TEGRETOL [Concomitant]
     Dosage: 400 - 600 MG DAILY
     Dates: start: 20030301
  13. CELEXA [Concomitant]
     Dates: start: 20011126
  14. REGLAN [Concomitant]
     Dosage: STRENGTH - 10 MG AND 30 MG, DOSE - 30 MG DAILY
     Dates: start: 20011126
  15. ANTABUSE [Concomitant]
     Dates: start: 20030301
  16. CODEINE [Concomitant]
     Indication: PAIN
     Dosage: 15 - 720 MG AS REQUIRED
     Route: 048
     Dates: start: 20030301
  17. ULTRAM [Concomitant]
     Indication: PAIN
     Dates: start: 20030301
  18. ZOLOFT [Concomitant]
     Dates: start: 20040605
  19. PEGASYS [Concomitant]
     Dosage: 135 PER WEEK
     Dates: start: 20040605
  20. COPEGUS [Concomitant]
     Indication: HEPATITIS C
     Dosage: 800 -1000 MG DAILY
     Dates: start: 20040605
  21. INTERFERON ALFA [Concomitant]
     Indication: HEPATITIS C
     Dates: start: 20040605
  22. CLONAZEPAM [Concomitant]
     Dosage: STRENGTH - 2 - 6 MG, DOSE 6 MG DAILY
     Dates: start: 20050304
  23. PROZAC [Concomitant]
     Dates: start: 20050509
  24. ALBUTEROL [Concomitant]
     Dosage: AS REQUIRED
     Dates: start: 20050509
  25. HYDROCHLOROTHIAZIDE [Concomitant]
     Dates: start: 20060207
  26. ADDERALL 10 [Concomitant]
     Dates: start: 20071022
  27. DURAGESIC-75 [Concomitant]
     Dosage: 75 MCG/ HR PT 72 EVERY 3 DAYS
     Dates: start: 20071022
  28. ESTRADIOL [Concomitant]
     Dates: start: 20060207
  29. PROTONIX [Concomitant]
     Route: 042
     Dates: start: 20060207

REACTIONS (5)
  - DIABETES MELLITUS [None]
  - NEUROPATHY PERIPHERAL [None]
  - PANCREATITIS [None]
  - PANCREATITIS CHRONIC [None]
  - REPRODUCTIVE TRACT DISORDER [None]
